FAERS Safety Report 15422531 (Version 3)
Quarter: 2019Q2

REPORT INFORMATION
  Report Type: Spontaneous
  Country: JP (occurrence: JP)
  Receive Date: 20180925
  Receipt Date: 20190407
  Transmission Date: 20190711
  Serious: Yes (Life-Threatening, Disabling, Other)
  Sender: FDA-Public Use
  Company Number: JP-UCBSA-2018042541

PATIENT
  Age: 66 Year
  Sex: Female
  Weight: 48 kg

DRUGS (10)
  1. CIMZIA [Suspect]
     Active Substance: CERTOLIZUMAB PEGOL
     Indication: RHEUMATOID ARTHRITIS
     Dosage: 200 MG, EV 2 WEEKS(QOW)
     Route: 058
     Dates: start: 20140827
  2. RHEUMATREX [Concomitant]
     Active Substance: METHOTREXATE SODIUM
     Indication: RHEUMATOID ARTHRITIS
     Route: 048
     Dates: start: 20140304
  3. CIMZIA [Suspect]
     Active Substance: CERTOLIZUMAB PEGOL
     Dosage: 200 MG, EV 4 WEEKS
     Route: 058
     Dates: start: 201611
  4. RHEUMATREX [Concomitant]
     Active Substance: METHOTREXATE SODIUM
     Route: 048
     Dates: start: 201406
  5. RHEUMATREX [Concomitant]
     Active Substance: METHOTREXATE SODIUM
     Route: 048
     Dates: start: 201409
  6. RHEUMATREX [Concomitant]
     Active Substance: METHOTREXATE SODIUM
     Route: 048
     Dates: start: 201410
  7. RHEUMATREX [Concomitant]
     Active Substance: METHOTREXATE SODIUM
     Route: 048
     Dates: start: 201507
  8. RHEUMATREX [Concomitant]
     Active Substance: METHOTREXATE SODIUM
     Route: 048
     Dates: start: 201405
  9. RHEUMATREX [Concomitant]
     Active Substance: METHOTREXATE SODIUM
     Route: 048
     Dates: start: 201404
  10. FOLIAMIN [Concomitant]
     Active Substance: FOLIC ACID
     Indication: RHEUMATOID ARTHRITIS
     Route: 048
     Dates: start: 201403

REACTIONS (7)
  - Extremity necrosis [Recovered/Resolved with Sequelae]
  - Compartment syndrome [Recovered/Resolved with Sequelae]
  - Acute kidney injury [Recovering/Resolving]
  - Neutropenia [Recovered/Resolved]
  - Myocarditis [Recovered/Resolved]
  - Peroneal nerve injury [Recovered/Resolved with Sequelae]
  - Rhabdomyolysis [Recovering/Resolving]

NARRATIVE: CASE EVENT DATE: 20180109
